FAERS Safety Report 12990397 (Version 4)
Quarter: 2016Q4

REPORT INFORMATION
  Report Type: Spontaneous
  Country: AU (occurrence: AU)
  Receive Date: 20161201
  Receipt Date: 20161216
  Transmission Date: 20170207
  Serious: Yes (Life-Threatening, Hospitalization)
  Sender: FDA-Public Use
  Company Number: AU-SA-2016SA218739

PATIENT
  Age: 63 Year
  Sex: Male

DRUGS (12)
  1. TAMSULOSIN [Concomitant]
     Active Substance: TAMSULOSIN
  2. THYROXIN [Concomitant]
     Active Substance: LEVOTHYROXINE
     Dosage: DOSE ALTERNATING EACH DAY BETWEEN 150 AND 200 MG
  3. CLOPIDOGREL BISULFATE. [Suspect]
     Active Substance: CLOPIDOGREL BISULFATE
     Indication: THROMBOSIS PROPHYLAXIS
     Route: 048
  4. ATENOLOL. [Concomitant]
     Active Substance: ATENOLOL
  5. ATORVASTATIN [Concomitant]
     Active Substance: ATORVASTATIN
  6. FENOFIBRATE. [Concomitant]
     Active Substance: FENOFIBRATE
  7. LERCANIDIPINE [Concomitant]
     Active Substance: LERCANIDIPINE
  8. HYDROCHLOROTHIAZIDE. [Concomitant]
     Active Substance: HYDROCHLOROTHIAZIDE
  9. METFORMIN [Concomitant]
     Active Substance: METFORMIN HYDROCHLORIDE
  10. PANTOPRAZOLE [Concomitant]
     Active Substance: PANTOPRAZOLE SODIUM
  11. IRBESARTAN. [Concomitant]
     Active Substance: IRBESARTAN
  12. MOXONIDINE [Concomitant]
     Active Substance: MOXONIDINE

REACTIONS (12)
  - Haemodynamic instability [Recovered/Resolved]
  - Hypotension [Recovered/Resolved]
  - Tachycardia [Recovered/Resolved]
  - Acute kidney injury [Not Recovered/Not Resolved]
  - Haematuria [Recovered/Resolved]
  - Haemoglobin decreased [Recovered/Resolved]
  - Glomerular filtration rate decreased [Not Recovered/Not Resolved]
  - Abdominal pain [Recovered/Resolved]
  - Blood creatinine increased [Not Recovered/Not Resolved]
  - Renal haemorrhage [Recovered/Resolved with Sequelae]
  - Abdominal tenderness [Recovered/Resolved]
  - Renal haematoma [Recovered/Resolved]
